FAERS Safety Report 4314273-7 (Version None)
Quarter: 2004Q1

REPORT INFORMATION
  Report Type: 
  Country: None (occurrence: None)
  Receive Date: 20040309
  Receipt Date: 20040305
  Transmission Date: 20041129
  Serious: Yes (Death, Hospitalization, Other)
  Sender: FDA-Public Use
  Company Number: US-BRISTOL-MYERS SQUIBB COMPANY-12525531

PATIENT
  Age: 76 Year
  Sex: Female

DRUGS (16)
  1. CISPLATIN [Suspect]
     Indication: SMALL CELL LUNG CANCER STAGE UNSPECIFIED
     Dates: start: 20031030, end: 20031030
  2. ENBREL [Suspect]
     Indication: SMALL CELL LUNG CANCER STAGE UNSPECIFIED
  3. ETOPOSIDE [Concomitant]
  4. WARFARIN SODIUM [Concomitant]
  5. ROFECOXIB [Concomitant]
  6. ATORVASTATIN CALCIUM [Concomitant]
  7. ALPRAZOLAM [Concomitant]
  8. DEXTROPROPOXYPHENE [Concomitant]
  9. ACETAZOLAMIDE [Concomitant]
  10. MEDROXYPROGESTERONE ACETATE [Concomitant]
  11. LANSOPRAZOLE [Concomitant]
  12. NIASPAN [Concomitant]
  13. LEVOTHYROXINE SODIUM [Concomitant]
  14. CYCLOBENZAPRINE HCL [Concomitant]
  15. GRANISETRON HCL [Concomitant]
  16. LORAZEPAM [Concomitant]

REACTIONS (6)
  - ATRIAL FIBRILLATION [None]
  - CARDIAC FAILURE CONGESTIVE [None]
  - INFECTION [None]
  - NECROTISING FASCIITIS [None]
  - RENAL FAILURE ACUTE [None]
  - SMALL CELL LUNG CANCER STAGE UNSPECIFIED [None]
